FAERS Safety Report 7941138-1 (Version None)
Quarter: 2011Q4

REPORT INFORMATION
  Report Type: 
  Country: None (occurrence: None)
  Receive Date: 20111128
  Receipt Date: 20111118
  Transmission Date: 20120403
  Serious: Yes (Other)
  Sender: FDA-Public Use
  Company Number: FI-JNJFOC-20111002688

PATIENT
  Age: 13 Year
  Sex: Male

DRUGS (2)
  1. CONCERTA [Suspect]
     Indication: ASPERGER'S DISORDER
     Route: 065
     Dates: start: 20110501
  2. CONCERTA [Suspect]
     Route: 065
     Dates: start: 20110801

REACTIONS (4)
  - ELECTROCARDIOGRAM QT PROLONGED [None]
  - ARRHYTHMIA [None]
  - HEART RATE INCREASED [None]
  - PYREXIA [None]
